FAERS Safety Report 4354259-X (Version None)
Quarter: 2004Q2

REPORT INFORMATION
  Report Type: 
  Country: None (occurrence: None)
  Receive Date: 20040506
  Receipt Date: 20040429
  Transmission Date: 20050107
  Serious: Yes (Other)
  Sender: FDA-Public Use
  Company Number: US-ROCHE-365977

PATIENT
  Age: 48 Year
  Sex: Female

DRUGS (6)
  1. PEG-INTERFERON ALFA 2A (RO 25-8310) [Suspect]
     Route: 058
     Dates: start: 20030512
  2. PEG-INTERFERON ALFA 2A (RO 25-8310) [Suspect]
     Route: 058
     Dates: start: 20040309
  3. PEG-INTERFERON ALFA 2A (RO 25-8310) [Suspect]
     Route: 058
     Dates: end: 20040406
  4. BLINDED THYMOSIN ALFA 1 [Suspect]
     Route: 050
     Dates: start: 20030512, end: 20040411
  5. APO-ZOPICLONE [Concomitant]
     Route: 048
     Dates: start: 20030904
  6. MACROBID [Concomitant]
     Route: 048
     Dates: start: 20040309, end: 20040317

REACTIONS (5)
  - CONVULSION [None]
  - DIZZINESS [None]
  - MEDICATION ERROR [None]
  - PLATELET COUNT DECREASED [None]
  - TREATMENT NONCOMPLIANCE [None]
